FAERS Safety Report 22528418 (Version 5)
Quarter: 2024Q1

REPORT INFORMATION
  Report Type: Spontaneous
  Country: US (occurrence: US)
  Receive Date: 20230607
  Receipt Date: 20240130
  Transmission Date: 20240410
  Serious: Yes (Other)
  Sender: FDA-Public Use
  Company Number: US-BRISTOL-MYERS SQUIBB COMPANY-2023-079255

PATIENT
  Age: 77 Year
  Sex: Male

DRUGS (2)
  1. POMALYST [Suspect]
     Active Substance: POMALIDOMIDE
     Indication: Plasma cell myeloma
     Dosage: TAKE 1 CAPSULE BY MOUTH DAILY ON DAYS 1-21 OF EACH 28 DAY CYCLE.? TAKE AT THE SAME TIME EVERY DAY.
     Route: 048
     Dates: start: 20210810
  2. POMALYST [Suspect]
     Active Substance: POMALIDOMIDE
     Dosage: TAKE 1 CAPSULE BY MOUTH DAILY ON DAYS 1-21 OF EACH 28-DAY CYCLE. TAKE AT THE SAME TIME EVERY DAY.
     Route: 048
     Dates: start: 20210921

REACTIONS (5)
  - Thrombosis [Recovered/Resolved]
  - Plasma cell myeloma [Unknown]
  - Urinary tract infection [Recovering/Resolving]
  - COVID-19 [Recovered/Resolved]
  - Nephrolithiasis [Recovered/Resolved]
